FAERS Safety Report 16034269 (Version 1)
Quarter: 2019Q1

REPORT INFORMATION
  Report Type: Spontaneous
  Country: US (occurrence: US)
  Receive Date: 20190305
  Receipt Date: 20190305
  Transmission Date: 20190418
  Serious: No
  Sender: FDA-Public Use
  Company Number: US-IMPAX LABORATORIES, LLC-2018-IPXL-02780

PATIENT
  Sex: Male
  Weight: 65 kg

DRUGS (1)
  1. RYTARY [Suspect]
     Active Substance: CARBIDOPA\LEVODOPA
     Indication: PARKINSON^S DISEASE
     Dosage: 61.25/245 MG, THREE CAPSULES, FOUR TIMES A DAY
     Route: 065

REACTIONS (3)
  - Prescribed overdose [Unknown]
  - Intentional product use issue [Not Recovered/Not Resolved]
  - Cataract [Unknown]
